FAERS Safety Report 20101308 (Version 5)
Quarter: 2022Q3

REPORT INFORMATION
  Report Type: Report from Study
  Country: US (occurrence: US)
  Receive Date: 20211123
  Receipt Date: 20220902
  Transmission Date: 20221027
  Serious: Yes (Other)
  Sender: FDA-Public Use
  Company Number: US-NOVARTISPH-NVSC2021US244657

PATIENT
  Sex: Female

DRUGS (3)
  1. ENTRESTO [Suspect]
     Active Substance: SACUBITRIL\VALSARTAN
     Indication: Product used for unknown indication
     Dosage: UNK
     Route: 048
  2. ENTRESTO [Suspect]
     Active Substance: SACUBITRIL\VALSARTAN
     Dosage: UNK
     Route: 048
  3. ENTRESTO [Suspect]
     Active Substance: SACUBITRIL\VALSARTAN
     Route: 048

REACTIONS (13)
  - Basal cell carcinoma [Unknown]
  - Infection [Unknown]
  - Stress [Unknown]
  - Malaise [Unknown]
  - Anxiety [Unknown]
  - Weight fluctuation [Unknown]
  - Depression [Unknown]
  - Depressed mood [Unknown]
  - Heart rate increased [Unknown]
  - Somnolence [Unknown]
  - Hypotension [Unknown]
  - Cough [Unknown]
  - Product dispensing issue [Unknown]
